FAERS Safety Report 8861925 (Version 2)
Quarter: 2012Q4

REPORT INFORMATION
  Report Type: 
  Country: JP (occurrence: JP)
  Receive Date: 20121026
  Receipt Date: 20121106
  Transmission Date: 20130627
  Serious: Yes (Life-Threatening, Other)
  Sender: FDA-Public Use
  Company Number: JP-009507513-1210JPN010064

PATIENT
  Age: 40 Year
  Sex: Female
  Weight: 44 kg

DRUGS (10)
  1. TEMODAL [Suspect]
     Dosage: Yas 33 cool of every day for 23 days for five days
     Route: 048
     Dates: start: 20061009, end: 20090823
  2. TEMODAL [Suspect]
     Dosage: Yas 1 cool of every day for four weeks for 42 days
     Route: 048
     Dates: start: 20070116, end: 20070225
  3. ALEVIATIN [Concomitant]
     Indication: PROPHYLAXIS
     Dosage: 1 DF, bid
     Route: 048
     Dates: start: 20040913, end: 20120520
  4. MENILET (ISOSORBIDE) [Concomitant]
     Indication: BRAIN OEDEMA
     Dosage: 30 g, bid
     Dates: start: 20080723, end: 20080926
  5. PREDONINE [Concomitant]
     Indication: BRAIN OEDEMA
     Dosage: 1 DF, tid
     Route: 048
     Dates: start: 20080924, end: 20081206
  6. PREDONINE [Concomitant]
     Dosage: 1 DF, tid
     Route: 048
     Dates: start: 20090916, end: 20100525
  7. BAKTAR [Concomitant]
     Indication: PROPHYLAXIS
     Dosage: 2 DF, bid
     Route: 048
     Dates: start: 20080924, end: 20081120
  8. JUVELA N [Concomitant]
     Indication: BRAIN OEDEMA
     Dosage: 1 DF, tid
     Route: 048
     Dates: start: 20081022, end: 20120925
  9. GOREI-SAN [Concomitant]
     Indication: BRAIN OEDEMA
     Dosage: 2.5 g, tid
     Route: 048
     Dates: start: 20090624, end: 20100727
  10. ISOBIDE [Concomitant]
     Indication: BRAIN OEDEMA
     Dosage: 30 ml, bid
     Dates: start: 20110907, end: 20111101

REACTIONS (4)
  - Radiation necrosis [Not Recovered/Not Resolved]
  - Breast cancer [Not Recovered/Not Resolved]
  - Nausea [Recovered/Resolved]
  - Diarrhoea [Recovered/Resolved]
